FAERS Safety Report 4354105-4 (Version None)
Quarter: 2004Q2

REPORT INFORMATION
  Report Type: 
  Country: None (occurrence: None)
  Receive Date: 20040503
  Receipt Date: 20040422
  Transmission Date: 20050107
  Serious: Yes (Hospitalization, Other)
  Sender: FDA-Public Use
  Company Number: HU-JNJFOC-20040404670

PATIENT
  Age: 37 Year
  Sex: Male

DRUGS (4)
  1. REMICADE [Suspect]
     Indication: CROHN'S DISEASE
     Dosage: 5 MG/KG, INTRAVENOUS
     Route: 042
     Dates: start: 20031215, end: 20031230
  2. MEDROL [Concomitant]
  3. ISONIAZID [Concomitant]
  4. PLA (HYDROXYCHLOROQUINE PHOSPHATE) [Concomitant]

REACTIONS (3)
  - LYMPHADENOPATHY [None]
  - TUBERCULOSIS [None]
  - VIRAL UPPER RESPIRATORY TRACT INFECTION [None]
